FAERS Safety Report 25186854 (Version 1)
Quarter: 2025Q2

REPORT INFORMATION
  Report Type: Spontaneous
  Country: PL (occurrence: PL)
  Receive Date: 20250411
  Receipt Date: 20250411
  Transmission Date: 20250716
  Serious: Yes (Death)
  Sender: BOEHRINGER INGELHEIM
  Company Number: PL-BoehringerIngelheim-2025-BI-020819

PATIENT
  Age: 50 Year
  Sex: Male

DRUGS (1)
  1. OFEV [Suspect]
     Active Substance: NINTEDANIB
     Indication: Interstitial lung disease

REACTIONS (1)
  - Interstitial lung disease [Fatal]
